FAERS Safety Report 25036241 (Version 1)
Quarter: 2025Q1

REPORT INFORMATION
  Report Type: Spontaneous
  Country: US (occurrence: None)
  Receive Date: 20250304
  Receipt Date: 20250304
  Transmission Date: 20250408
  Serious: Yes (Life-Threatening)
  Sender: FDA-CTU
  Company Number: None

PATIENT
  Age: 50 Year
  Sex: Female
  Weight: 58.5 kg

DRUGS (5)
  1. QELBREE [Suspect]
     Active Substance: VILOXAZINE HYDROCHLORIDE
     Indication: Attention deficit hyperactivity disorder
     Route: 048
  2. FLUOXETINE HYDROCHLORIDE [Concomitant]
     Active Substance: FLUOXETINE HYDROCHLORIDE
  3. VEOZAH [Concomitant]
     Active Substance: FEZOLINETANT
  4. LYRICA [Concomitant]
     Active Substance: PREGABALIN
  5. SYNTHROID [Concomitant]
     Active Substance: LEVOTHYROXINE SODIUM

REACTIONS (12)
  - Suicidal ideation [None]
  - Insomnia [None]
  - Heart rate increased [None]
  - Decreased appetite [None]
  - Headache [None]
  - Dry mouth [None]
  - Fatigue [None]
  - Nausea [None]
  - Constipation [None]
  - Palpitations [None]
  - Dizziness [None]
  - Dizziness postural [None]

NARRATIVE: CASE EVENT DATE: 20250104
